FAERS Safety Report 6004772-4 (Version None)
Quarter: 2008Q4

REPORT INFORMATION
  Report Type: 
  Country: None (occurrence: None)
  Receive Date: 20081215
  Receipt Date: 20030521
  Transmission Date: 20090506
  Serious: Yes (Other)
  Sender: FDA-Public Use
  Company Number: 2007BH009727

PATIENT
  Sex: Female

DRUGS (2)
  1. HEPARIN SODIUM 25,000 UNITS AND DEXTROSE 5% [Suspect]
     Indication: ANTICOAGULANT THERAPY
     Dosage: 600 UNITS;EVERY HR;IV : 500 UNITS;EVERY HR;
     Route: 042
     Dates: end: 20030520
  2. HEPARIN SODIUM 25,000 UNITS AND DEXTROSE 5% [Suspect]
     Indication: ANTICOAGULANT THERAPY
     Dosage: 600 UNITS;EVERY HR;IV : 500 UNITS;EVERY HR;
     Route: 042
     Dates: start: 20030520, end: 20030521

REACTIONS (1)
  - ACTIVATED PARTIAL THROMBOPLASTIN TIME PROLONGED [None]
